FAERS Safety Report 25797456 (Version 1)
Quarter: 2025Q3

REPORT INFORMATION
  Report Type: Spontaneous
  Country: US (occurrence: None)
  Receive Date: 20250912
  Receipt Date: 20250912
  Transmission Date: 20251020
  Serious: Yes (Hospitalization, Disabling)
  Sender: FDA-CTU
  Company Number: None

PATIENT
  Age: 36 Year
  Sex: Female
  Weight: 90 kg

DRUGS (1)
  1. LEXAPRO [Suspect]
     Active Substance: ESCITALOPRAM OXALATE

REACTIONS (7)
  - Heart rate increased [None]
  - Hypertension [None]
  - Insomnia [None]
  - Seizure [None]
  - Seizure like phenomena [None]
  - Injury [None]
  - Withdrawal syndrome [None]

NARRATIVE: CASE EVENT DATE: 20210601
